FAERS Safety Report 17705947 (Version 3)
Quarter: 2020Q2

REPORT INFORMATION
  Report Type: Spontaneous
  Country: ES (occurrence: ES)
  Receive Date: 20200424
  Receipt Date: 20200508
  Transmission Date: 20200714
  Serious: Yes (Death)
  Sender: FDA-Public Use
  Company Number: ES-CELGENEUS-ESP-20200303253

PATIENT
  Age: 78 Year
  Sex: Female
  Weight: 71 kg

DRUGS (3)
  1. OMEPRAZOLE. [Concomitant]
     Active Substance: OMEPRAZOLE
     Indication: PROPHYLAXIS
     Route: 065
  2. DEPRAX [Concomitant]
     Indication: PROPHYLAXIS
     Dosage: 1/2 COMP NOCHE
     Route: 065
  3. AZACITIDINE. [Suspect]
     Active Substance: AZACITIDINE
     Indication: ACUTE MYELOID LEUKAEMIA RECURRENT
     Route: 058
     Dates: start: 20130930, end: 20191227

REACTIONS (2)
  - Acute myeloid leukaemia [Fatal]
  - Anaemia [Recovered/Resolved]

NARRATIVE: CASE EVENT DATE: 20190930
